FAERS Safety Report 25283762 (Version 1)
Quarter: 2025Q2

REPORT INFORMATION
  Report Type: Spontaneous
  Country: US (occurrence: US)
  Receive Date: 20250508
  Receipt Date: 20250508
  Transmission Date: 20250717
  Serious: No
  Sender: TEVA
  Company Number: US-TEVA-VS-3326861

PATIENT
  Sex: Female

DRUGS (1)
  1. TRAMADOL [Suspect]
     Active Substance: TRAMADOL
     Indication: Pain
     Route: 065

REACTIONS (5)
  - Burning sensation [Unknown]
  - Hypersensitivity [Unknown]
  - Erythema [Unknown]
  - Peripheral swelling [Unknown]
  - Product availability issue [Unknown]
